FAERS Safety Report 7914868-5 (Version None)
Quarter: 2011Q4

REPORT INFORMATION
  Report Type: 
  Country: None (occurrence: None)
  Receive Date: 20111115
  Receipt Date: 20111111
  Transmission Date: 20120403
  Serious: Yes (Other)
  Sender: FDA-Public Use
  Company Number: NL-ROCHE-1011741

PATIENT

DRUGS (8)
  1. PYRIDOSTIGMINE BROMIDE [Concomitant]
  2. INSULIN [Concomitant]
  3. BECLOMETHASONE DIPROPIONATE [Concomitant]
     Dates: start: 20070101
  4. OMEPRAZOLE [Concomitant]
  5. PREDNISONE [Concomitant]
  6. SALMETEROL [Concomitant]
  7. MYCOPHENOLATE MOFETIL (CELLCEPT) [Suspect]
     Indication: MYASTHENIA GRAVIS
     Route: 048
  8. ALENDRONIC ACID [Concomitant]

REACTIONS (1)
  - MALIGNANT MELANOMA [None]
